FAERS Safety Report 9092859 (Version 1)
Quarter: 2013Q1

REPORT INFORMATION
  Report Type: Report from Study
  Country: US (occurrence: US)
  Receive Date: 20130131
  Receipt Date: 20130131
  Transmission Date: 20140127
  Serious: No
  Sender: FDA-Public Use
  Company Number: US-ABBOTT-12P-163-0998591-00

PATIENT
  Sex: Female

DRUGS (6)
  1. HUMIRA [Suspect]
     Indication: CROHN^S DISEASE
     Route: 058
     Dates: start: 2007
  2. AMITRIPTYLINE [Concomitant]
     Indication: DEPRESSION
  3. ATENOLOL [Concomitant]
     Indication: HYPERTENSION
  4. MERCAPTOPURINE [Concomitant]
     Indication: CROHN^S DISEASE
  5. VIVELLE DOT [Concomitant]
     Indication: MENOPAUSE
  6. OXYBUTYNIN [Concomitant]
     Indication: POLLAKIURIA

REACTIONS (1)
  - Injection site pain [Recovered/Resolved]
